FAERS Safety Report 6497979-3 (Version None)
Quarter: 2009Q4

REPORT INFORMATION
  Report Type: 
  Country: None (occurrence: None)
  Receive Date: 20091215
  Receipt Date: 20091201
  Transmission Date: 20100525
  Serious: Yes (Hospitalization, Other)
  Sender: FDA-Public Use
  Company Number: PHHY2009GB53529

PATIENT
  Age: 42 Year
  Sex: Female

DRUGS (6)
  1. DICLOFENAC [Suspect]
     Dosage: 75 MG, BID
     Route: 048
  2. ACETAMINOPHEN WITH PROPOXYPHENE HCL TAB [Suspect]
     Dosage: UNK
  3. METFORMIN HCL [Suspect]
     Dosage: 500 MG, TID
  4. NORTRIPTYLINE [Suspect]
     Dosage: 10 MG, QD
     Route: 048
  5. RIZATRIPTAN BENZOATE [Suspect]
     Dosage: 10 MG, PRN
  6. TEMAZEPAM [Suspect]
     Dosage: 10 MG, QHS

REACTIONS (23)
  - ABDOMINAL PAIN [None]
  - BLOOD ALBUMIN DECREASED [None]
  - BLOOD CREATININE DECREASED [None]
  - BLOOD UREA DECREASED [None]
  - COLECTOMY [None]
  - COLONIC STENOSIS [None]
  - CROHN'S DISEASE [None]
  - DIARRHOEA [None]
  - DUODENAL ULCER [None]
  - FIBROSIS [None]
  - GASTRITIS [None]
  - GASTROINTESTINAL DISORDER [None]
  - HAEMATEMESIS [None]
  - HEPATIC STEATOSIS [None]
  - INFLAMMATORY BOWEL DISEASE [None]
  - LAPAROTOMY [None]
  - LARGE INTESTINAL ULCER [None]
  - OEDEMA [None]
  - OESOPHAGITIS ULCERATIVE [None]
  - PALLOR [None]
  - REFLUX OESOPHAGITIS [None]
  - VOMITING [None]
  - WEIGHT DECREASED [None]
